FAERS Safety Report 5349567-X (Version None)
Quarter: 2007Q2

REPORT INFORMATION
  Report Type: 
  Country: None (occurrence: None)
  Receive Date: 20070508
  Receipt Date: 20060512
  Transmission Date: 20071010
  Serious: Yes (Hospitalization)
  Sender: FDA-Public Use
  Company Number: 447799

PATIENT
  Age: 68 Year
  Sex: Female

DRUGS (4)
  1. NAPROXEN [Suspect]
     Indication: OSTEOARTHRITIS
     Dosage: 3 DOSE FORM ORAL
     Route: 048
  2. HYDROCHLOROTHIAZIDE [Concomitant]
  3. PROMETHEZINE HCL [Concomitant]
  4. METHYLSULFONYLMETHANE (DIMETHYL SULFONE) [Concomitant]

REACTIONS (4)
  - CARDIAC FAILURE CONGESTIVE [None]
  - FLUID OVERLOAD [None]
  - HEPATIC FAILURE [None]
  - RENAL FAILURE [None]
